FAERS Safety Report 5450922-8 (Version None)
Quarter: 2007Q3

REPORT INFORMATION
  Report Type: 
  Country: None (occurrence: None)
  Receive Date: 20070913
  Receipt Date: 20070903
  Transmission Date: 20080115
  Serious: Yes (Other)
  Sender: FDA-Public Use
  Company Number: DK-JNJFOC-20070900403

PATIENT
  Age: 40 Year
  Sex: Male

DRUGS (2)
  1. REMICADE [Suspect]
     Route: 042
  2. REMICADE [Suspect]
     Indication: ANKYLOSING SPONDYLITIS
     Dosage: 17 INFUSIONS ON UNKNOWN DATES
     Route: 042

REACTIONS (4)
  - HEART RATE DECREASED [None]
  - MALAISE [None]
  - PARAESTHESIA [None]
  - SYNCOPE [None]
